FAERS Safety Report 7367410-4 (Version None)
Quarter: 2011Q1

REPORT INFORMATION
  Report Type: 
  Country: None (occurrence: None)
  Receive Date: 20110322
  Receipt Date: 20110317
  Transmission Date: 20110831
  Serious: Yes (Hospitalization)
  Sender: FDA-Public Use
  Company Number: AR-GENZYME-FABR-1001791

PATIENT
  Sex: Male

DRUGS (11)
  1. FABRAZYME [Suspect]
     Dosage: 1 MG/KG, Q2W
     Route: 042
     Dates: start: 20091201, end: 20100101
  2. FABRAZYME [Suspect]
     Dosage: 1 MG/KG, UNK
     Route: 042
     Dates: start: 20070531
  3. FABRAZYME [Suspect]
     Dosage: 1 MG/KG, ONCE
     Route: 042
     Dates: start: 20100701, end: 20100701
  4. FABRAZYME [Suspect]
     Dosage: 0.7 MG/KG, ONCE
     Route: 042
     Dates: start: 20100901, end: 20100901
  5. FABRAZYME [Suspect]
     Dosage: 1 MG/KG, Q2W
     Route: 042
     Dates: start: 20110101
  6. FABRAZYME [Suspect]
     Dosage: 1 MG/KG, ONCE
     Route: 042
     Dates: start: 20091119, end: 20091119
  7. FABRAZYME [Suspect]
     Dosage: 0.7 MG/KG, Q2W
     Route: 042
     Dates: start: 20101101, end: 20101101
  8. FABRAZYME [Suspect]
     Dosage: 0.7 MG/KG, ONCE
     Route: 042
     Dates: start: 20101001, end: 20101001
  9. FABRAZYME [Suspect]
     Dosage: 0.7 MG/KG, Q2W
     Route: 042
     Dates: start: 20100801, end: 20100801
  10. FABRAZYME [Suspect]
     Indication: FABRY'S DISEASE
     Dosage: 1 MG/KG, ONCE
     Route: 042
     Dates: start: 20091008, end: 20091008
  11. FABRAZYME [Suspect]
     Dosage: 0.5 MG/KG, Q2W
     Route: 042
     Dates: start: 20100301, end: 20100401

REACTIONS (2)
  - PATELLA FRACTURE [None]
  - OSTEOMYELITIS [None]
